FAERS Safety Report 5182863-8 (Version None)
Quarter: 2006Q4

REPORT INFORMATION
  Report Type: 
  Country: None (occurrence: None)
  Receive Date: 20061220
  Receipt Date: 20051128
  Transmission Date: 20070319
  Serious: No
  Sender: FDA-Public Use
  Company Number: US-GLAXOSMITHKLINE-A0583562A

PATIENT
  Age: 54 Year
  Sex: Female

DRUGS (2)
  1. NICODERM CQ [Suspect]
     Dates: start: 20051125, end: 20051128
  2. ALTACE [Concomitant]

REACTIONS (7)
  - BLOOD PRESSURE DECREASED [None]
  - DIZZINESS [None]
  - HEADACHE [None]
  - HYPERTENSION [None]
  - INSOMNIA [None]
  - MALAISE [None]
  - NAUSEA [None]
